FAERS Safety Report 7857422-6 (Version None)
Quarter: 2011Q4

REPORT INFORMATION
  Report Type: 
  Country: None (occurrence: None)
  Receive Date: 20111027
  Receipt Date: 20090318
  Transmission Date: 20120403
  Serious: No
  Sender: FDA-Public Use
  Company Number: 2008BI031551

PATIENT
  Sex: Female

DRUGS (4)
  1. NEURONTIN [Concomitant]
     Indication: HYPOAESTHESIA
     Dates: start: 20090201
  2. TYSABRI [Suspect]
     Indication: MULTIPLE SCLEROSIS
     Route: 042
     Dates: start: 20080804
  3. NEURONTIN [Concomitant]
     Indication: PAIN IN EXTREMITY
     Dates: start: 20090201
  4. BACLOFEN [Concomitant]
     Indication: MUSCLE SPASMS

REACTIONS (9)
  - FEELING HOT [None]
  - STRESS [None]
  - PAIN IN EXTREMITY [None]
  - EMOTIONAL DISORDER [None]
  - MUSCULOSKELETAL DISORDER [None]
  - HYPOAESTHESIA [None]
  - MEMORY IMPAIRMENT [None]
  - BURNING SENSATION [None]
  - GAIT DISTURBANCE [None]
